FAERS Safety Report 7221953-2 (Version None)
Quarter: 2011Q1

REPORT INFORMATION
  Report Type: 
  Country: None (occurrence: None)
  Receive Date: 20110112
  Receipt Date: 20110106
  Transmission Date: 20110831
  Serious: Yes (Hospitalization)
  Sender: FDA-Public Use
  Company Number: B0692353A

PATIENT
  Sex: Male

DRUGS (3)
  1. AUGMENTIN [Suspect]
     Route: 048
     Dates: start: 20081211, end: 20081218
  2. MINI-SINTROM [Suspect]
     Route: 048
  3. CARDENSIEL [Concomitant]
     Route: 065

REACTIONS (1)
  - HAEMATURIA [None]
